FAERS Safety Report 24148963 (Version 2)
Quarter: 2024Q4

REPORT INFORMATION
  Report Type: Report from Study
  Country: IT (occurrence: IT)
  Receive Date: 20240729
  Receipt Date: 20241111
  Transmission Date: 20250115
  Serious: No
  Sender: SANDOZ
  Company Number: IT-SANDOZ-SDZ2024IT068553

PATIENT
  Age: 10 Year
  Sex: Female
  Weight: 24 kg

DRUGS (1)
  1. OMNITROPE [Suspect]
     Active Substance: SOMATROPIN
     Indication: Growth hormone deficiency
     Dosage: 0.5 MG, QD, LIQUID
     Route: 058
     Dates: start: 20181121

REACTIONS (3)
  - Drug dose omission by device [Unknown]
  - Device difficult to use [Unknown]
  - Device mechanical issue [Unknown]

NARRATIVE: CASE EVENT DATE: 20240724
